FAERS Safety Report 4784015-X (Version None)
Quarter: 2005Q3

REPORT INFORMATION
  Report Type: 
  Country: None (occurrence: None)
  Receive Date: 20050927
  Receipt Date: 20040625
  Transmission Date: 20060218
  Serious: Yes (Disabling)
  Sender: FDA-Public Use
  Company Number: WAES 0406USA02460

PATIENT
  Sex: Male

DRUGS (1)
  1. PROSCAR [Suspect]
     Dosage: 5 MG/ DAILY/ PO
     Route: 048
     Dates: start: 19990101

REACTIONS (1)
  - ERECTILE DYSFUNCTION [None]
